FAERS Safety Report 5370300-X (Version None)
Quarter: 2007Q2

REPORT INFORMATION
  Report Type: 
  Country: None (occurrence: None)
  Receive Date: 20070626
  Receipt Date: 20070618
  Transmission Date: 20071010
  Serious: Yes (Hospitalization, Other)
  Sender: FDA-Public Use
  Company Number: US-AVENTIS-200712507US

PATIENT
  Sex: Female
  Weight: 45 kg

DRUGS (5)
  1. LANTUS [Suspect]
     Dates: end: 20070601
  2. OPTICLIK (INSULIN INJECTION PEN) [Suspect]
  3. THYROID PREPARATIONS [Concomitant]
     Dosage: DOSE: UNK
  4. NOVOLOG [Concomitant]
     Dosage: DOSE: UNK
  5. REGULAR INSULIN [Concomitant]

REACTIONS (5)
  - BLOOD GLUCOSE INCREASED [None]
  - HYPERGLYCAEMIA [None]
  - KETOACIDOSIS [None]
  - POLLAKIURIA [None]
  - PSYCHOMOTOR HYPERACTIVITY [None]
